FAERS Safety Report 18053124 (Version 1)
Quarter: 2020Q3

REPORT INFORMATION
  Report Type: Spontaneous
  Country: CA (occurrence: CA)
  Receive Date: 20200721
  Receipt Date: 20200721
  Transmission Date: 20201103
  Serious: Yes (Death)
  Sender: FDA-Public Use
  Company Number: CA-ROCHE-2643708

PATIENT
  Age: 76 Year
  Sex: Male

DRUGS (14)
  1. TNKASE [Suspect]
     Active Substance: TENECTEPLASE
     Indication: PRODUCT USED FOR UNKNOWN INDICATION
     Route: 042
  2. ROSUVASTATIN. [Concomitant]
     Active Substance: ROSUVASTATIN
  3. GLICLAZIDE MR [Concomitant]
     Active Substance: GLICLAZIDE
  4. JANUVIA [Concomitant]
     Active Substance: SITAGLIPTIN PHOSPHATE
  5. HEPARINE SODIUM [Concomitant]
     Active Substance: HEPARIN SODIUM
  6. TRANDOLAPRIL. [Concomitant]
     Active Substance: TRANDOLAPRIL
  7. DUTASTERIDE. [Concomitant]
     Active Substance: DUTASTERIDE
  8. PLAVIX [Concomitant]
     Active Substance: CLOPIDOGREL BISULFATE
  9. AMOXICILLIN. [Concomitant]
     Active Substance: AMOXICILLIN
  10. ASA [Concomitant]
     Active Substance: ASPIRIN
  11. OSELTAMIVIR [Concomitant]
     Active Substance: OSELTAMIVIR
  12. FENOFIBRATE TAKEDA TEVA [Concomitant]
  13. METFORMIN [Concomitant]
     Active Substance: METFORMIN HYDROCHLORIDE
  14. MORPHINE [Concomitant]
     Active Substance: MORPHINE

REACTIONS (2)
  - Acute myocardial infarction [Fatal]
  - Haemorrhage intracranial [Fatal]
